FAERS Safety Report 11868238 (Version 1)
Quarter: 2015Q4

REPORT INFORMATION
  Report Type: Spontaneous
  Country: FR (occurrence: FR)
  Receive Date: 20151224
  Receipt Date: 20151224
  Transmission Date: 20160305
  Serious: Yes (Death, Life-Threatening, Hospitalization, Other)
  Sender: FDA-Public Use
  Company Number: FR-WATSON-2015-15003

PATIENT
  Age: 46 Year
  Sex: Male

DRUGS (4)
  1. BACLOFEN (UNKNOWN) [Suspect]
     Active Substance: BACLOFEN
     Indication: OFF LABEL USE
  2. OXAZEPAM. [Concomitant]
     Active Substance: OXAZEPAM
     Indication: ALCOHOLISM
     Dosage: UNK
     Route: 048
  3. BACLOFEN (UNKNOWN) [Suspect]
     Active Substance: BACLOFEN
     Indication: ALCOHOLISM
     Dosage: UNK
     Route: 048
  4. ALIMEMAZINE [Suspect]
     Active Substance: TRIMEPRAZINE
     Indication: ALCOHOLISM
     Dosage: UNK
     Route: 048

REACTIONS (10)
  - Completed suicide [Fatal]
  - Hypotension [Not Recovered/Not Resolved]
  - Off label use [Unknown]
  - Multi-organ failure [Fatal]
  - Hypothermia [Not Recovered/Not Resolved]
  - Coma [Not Recovered/Not Resolved]
  - Myocardial infarction [Fatal]
  - Overdose [Fatal]
  - Lactic acidosis [Not Recovered/Not Resolved]
  - Mydriasis [Unknown]
